APPROVED DRUG PRODUCT: TRAMADOL HYDROCHLORIDE
Active Ingredient: TRAMADOL HYDROCHLORIDE
Strength: 300MG
Dosage Form/Route: TABLET, EXTENDED RELEASE;ORAL
Application: A204421 | Product #003
Applicant: AUROBINDO PHARMA LTD
Approved: Oct 20, 2015 | RLD: No | RS: No | Type: DISCN